FAERS Safety Report 23582927 (Version 1)
Quarter: 2024Q1

REPORT INFORMATION
  Report Type: Spontaneous
  Country: US (occurrence: US)
  Receive Date: 20240301
  Receipt Date: 20240301
  Transmission Date: 20240410
  Serious: No
  Sender: FDA-Public Use
  Company Number: US-ALKEM LABORATORIES LIMITED-US-ALKEM-2023-16349

PATIENT
  Sex: Male

DRUGS (1)
  1. FINASTERIDE [Suspect]
     Active Substance: FINASTERIDE
     Indication: Alopecia
     Dosage: 1 MILLIGRAM ( 1 MG ORAL TABLET 90 TABLET, 90 DAYS)
     Route: 048
     Dates: start: 20230609, end: 20231201

REACTIONS (2)
  - Condition aggravated [Unknown]
  - Emotional distress [Recovered/Resolved]
